FAERS Safety Report 10273677 (Version 1)
Quarter: 2014Q2

REPORT INFORMATION
  Report Type: Spontaneous
  Country: US (occurrence: None)
  Receive Date: 20140630
  Receipt Date: 20140630
  Transmission Date: 20141212
  Serious: Yes (Other)
  Sender: FDA-Public Use
  Company Number: A400962836

PATIENT
  Sex: Female

DRUGS (1)
  1. COSOPT [Suspect]
     Dates: start: 201403

REACTIONS (2)
  - Visual acuity reduced [None]
  - Medication error [None]
